FAERS Safety Report 6779300-6 (Version None)
Quarter: 2010Q2

REPORT INFORMATION
  Report Type: 
  Country: None (occurrence: None)
  Receive Date: 20100618
  Receipt Date: 20100604
  Transmission Date: 20101027
  Serious: Yes (Other)
  Sender: FDA-Public Use
  Company Number: PHHY2010US36602

PATIENT
  Sex: Female

DRUGS (2)
  1. DIOVAN [Suspect]
     Dosage: UNK
  2. VERAPAMIL [Concomitant]
     Dosage: 180 MG

REACTIONS (5)
  - BRONCHITIS CHRONIC [None]
  - EMPHYSEMA [None]
  - FATIGUE [None]
  - FEELING ABNORMAL [None]
  - LUNG INFECTION [None]
